FAERS Safety Report 9511260 (Version 1)
Quarter: 2013Q1

REPORT INFORMATION
  Report Type: Spontaneous
  Country: US (occurrence: None)
  Receive Date: 20130305
  Receipt Date: 20130305
  Transmission Date: 20140127
  Serious: Yes (Hospitalization, Other)
  Sender: FDA-Public Use
  Company Number: 163-21880-12022676

PATIENT
  Age: 75 Year
  Sex: Male

DRUGS (9)
  1. REVLIMID (LENALIDOMIDE) (15 MILLIGRAM, CAPSULES) [Suspect]
     Indication: PLASMA CELL MYELOMA
     Dosage: 15 MG, Q DAY 3 WKS/4 WKS, PO
     Dates: start: 20100628, end: 20100714
  2. BLOOD(BLOOD AND RELATED PRODUCTS) [Concomitant]
  3. CALCIUM(CALCIUM)(UNKNOWN) [Concomitant]
  4. METOPROLOL(METOPROLOL)(UNKNOWN) [Concomitant]
  5. PRILOSEC [Concomitant]
  6. ASPIRIN(ACETYLSALICYLIC ACID) (UNKNOWN) [Concomitant]
  7. COUMADIN(WARFARIN SODIUM)(UNKNOWN) [Concomitant]
  8. PLAVIX(CLOPIDOGREL SULFATE)(UNKNOWN) [Concomitant]
  9. DECADRON(DEXAMETHASONE)(UNKNOWN) [Concomitant]

REACTIONS (7)
  - Cardiac failure congestive [None]
  - Oedema [None]
  - Pneumonia [None]
  - Asthenia [None]
  - Anaemia [None]
  - Pulmonary embolism [None]
  - Deep vein thrombosis [None]
